FAERS Safety Report 14027782 (Version 1)
Quarter: 2017Q3

REPORT INFORMATION
  Report Type: Report from Study
  Country: IT (occurrence: IT)
  Receive Date: 20170929
  Receipt Date: 20170929
  Transmission Date: 20171128
  Serious: Yes (Other)
  Sender: FDA-Public Use
  Company Number: IT-MYLANLABS-2017M1059368

PATIENT
  Age: 26 Year
  Sex: Female

DRUGS (1)
  1. BRUFEN 400 MG COMPRIMIDOS REVESTIDOS POR PEL?CULA [Suspect]
     Active Substance: IBUPROFEN
     Indication: MUSCULOSKELETAL PAIN
     Dosage: 1 DF AS NECESSARY
     Route: 048

REACTIONS (2)
  - Periorbital oedema [Recovered/Resolved]
  - Palatal oedema [Recovered/Resolved]

NARRATIVE: CASE EVENT DATE: 20170914
